FAERS Safety Report 15092833 (Version 1)
Quarter: 2018Q2

REPORT INFORMATION
  Report Type: Spontaneous
  Country: IT (occurrence: IT)
  Receive Date: 20180629
  Receipt Date: 20180629
  Transmission Date: 20180711
  Serious: Yes (Other)
  Sender: FDA-Public Use
  Company Number: IT-TEVA-2018-IT-919701

PATIENT
  Age: 28 Year
  Sex: Female

DRUGS (1)
  1. AMOXICILLINA/ACIDO CLAVULANICO [Suspect]
     Active Substance: AMOXICILLIN\CLAVULANIC ACID
     Indication: PRODUCT USED FOR UNKNOWN INDICATION
     Route: 048
     Dates: start: 20180303, end: 20180303

REACTIONS (4)
  - Rash erythematous [Recovering/Resolving]
  - Hypersensitivity [Recovering/Resolving]
  - Pruritus generalised [Recovering/Resolving]
  - Hypoaesthesia oral [Recovering/Resolving]

NARRATIVE: CASE EVENT DATE: 20180303
